FAERS Safety Report 20664405 (Version 1)
Quarter: 2022Q2

REPORT INFORMATION
  Report Type: Spontaneous
  Country: US (occurrence: US)
  Receive Date: 20220401
  Receipt Date: 20220401
  Transmission Date: 20220721
  Serious: No
  Sender: FDA-Public Use
  Company Number: US-BIOVITRUM-2021US11920

PATIENT
  Age: 61 Year
  Sex: Female

DRUGS (2)
  1. KINERET [Suspect]
     Active Substance: ANAKINRA
     Indication: Gouty tophus
     Route: 058
     Dates: start: 20211119
  2. KINERET [Suspect]
     Active Substance: ANAKINRA
     Route: 058
     Dates: start: 20211207

REACTIONS (7)
  - Fatigue [Unknown]
  - Rash [Unknown]
  - Injection site pain [Unknown]
  - Injection site bruising [Unknown]
  - Injection site pruritus [Unknown]
  - Intentional product misuse [Unknown]
  - Off label use [Not Recovered/Not Resolved]

NARRATIVE: CASE EVENT DATE: 20211119
